FAERS Safety Report 7300696-0 (Version None)
Quarter: 2011Q1

REPORT INFORMATION
  Report Type: 
  Country: None (occurrence: None)
  Receive Date: 20110103
  Receipt Date: 20091119
  Transmission Date: 20110831
  Serious: Yes (Hospitalization, Other)
  Sender: FDA-Public Use
  Company Number: 215655USA

PATIENT
  Sex: Female

DRUGS (1)
  1. BUPROPION HYDROCHLORIDE [Suspect]
     Indication: DRUG WITHDRAWAL SYNDROME
     Dosage: (100 MG), ORAL
     Route: 048

REACTIONS (5)
  - IRRITABILITY [None]
  - SUICIDAL IDEATION [None]
  - HEADACHE [None]
  - AMNESIA [None]
  - CRYING [None]
